FAERS Safety Report 8953073 (Version 1)
Quarter: 2012Q4

REPORT INFORMATION
  Report Type: 
  Country: US (occurrence: US)
  Receive Date: 20121205
  Receipt Date: 20121205
  Transmission Date: 20130627
  Serious: Yes (Other)
  Sender: FDA-Public Use
  Company Number: US-ELI_LILLY_AND_COMPANY-US201208000407

PATIENT
  Age: 59 Year
  Sex: Female

DRUGS (7)
  1. BYDUREON [Suspect]
     Indication: TYPE 2 DIABETES MELLITUS
     Dosage: 2 mg, weekly (1/W)
     Route: 058
     Dates: start: 20120621, end: 20120629
  2. BYETTA [Concomitant]
     Indication: TYPE 2 DIABETES MELLITUS
     Dosage: UNK
  3. METFORMIN [Concomitant]
     Indication: TYPE 2 DIABETES MELLITUS
     Dosage: 500 mg, bid
     Route: 048
     Dates: start: 20120621, end: 20120919
  4. LANTUS [Concomitant]
     Indication: TYPE 2 DIABETES MELLITUS
     Dosage: 20 u, qd
  5. SERTRALINE [Concomitant]
     Indication: ANXIETY
     Dosage: 50 mg, qd
  6. CRESTOR [Concomitant]
     Dosage: 20 mg, UNK
  7. ANTIBIOTICS [Concomitant]

REACTIONS (10)
  - Injection site abscess [Not Recovered/Not Resolved]
  - Injection site warmth [Recovered/Resolved]
  - Injection site infection [Not Recovered/Not Resolved]
  - Injection site nodule [Not Recovered/Not Resolved]
  - Injection site pain [Not Recovered/Not Resolved]
  - Injection site induration [Not Recovered/Not Resolved]
  - Injection site inflammation [Recovered/Resolved]
  - Injection site erythema [Recovered/Resolved]
  - Injection site swelling [Recovered/Resolved]
  - Wrong technique in drug usage process [Recovered/Resolved]
